FAERS Safety Report 7664140-6 (Version None)
Quarter: 2011Q3

REPORT INFORMATION
  Report Type: 
  Country: None (occurrence: None)
  Receive Date: 20110806
  Receipt Date: 20110113
  Transmission Date: 20111222
  Serious: No
  Sender: FDA-Public Use
  Company Number: US-ABBOTT-11P-163-0696969-00

PATIENT
  Sex: Female

DRUGS (4)
  1. NIASPAN [Suspect]
     Dosage: EVERY NIGHT
     Route: 048
  2. UNSPECIFIED THYROID HORMONE REPLACEMENT MEDICATION [Concomitant]
     Indication: HORMONE REPLACEMENT THERAPY
  3. NIASPAN [Suspect]
     Indication: LOW DENSITY LIPOPROTEIN INCREASED
     Dosage: EVERY NIGHT
     Route: 048
     Dates: start: 20101001
  4. UNSPECIFIED HTN MEDICATION [Concomitant]
     Indication: HYPERTENSION

REACTIONS (2)
  - BLOOD GLUCOSE INCREASED [None]
  - BLOOD TRIGLYCERIDES INCREASED [None]
